FAERS Safety Report 16219665 (Version 1)
Quarter: 2019Q2

REPORT INFORMATION
  Report Type: Spontaneous
  Country: IE (occurrence: IE)
  Receive Date: 20190420
  Receipt Date: 20190420
  Transmission Date: 20190711
  Serious: Yes (Other)
  Sender: FDA-Public Use
  Company Number: IE-ACCORD-123266

PATIENT
  Age: 37 Year
  Sex: Female

DRUGS (4)
  1. NALTREXONE/NALTREXONE HYDROCHLORIDE [Suspect]
     Active Substance: NALTREXONE
     Indication: DRUG DEPENDENCE
     Dosage: ALSO RECEIVED NALTREXONE INJECTION IN JAN 2018,ALSO RECEIVED  FROM AUG-2013
     Dates: start: 20180613
  2. SEROQUEL [Concomitant]
     Active Substance: QUETIAPINE FUMARATE
     Dosage: STRENGTH 25 MG
  3. CYMBALTA [Concomitant]
     Active Substance: DULOXETINE HYDROCHLORIDE
     Dosage: STRENGTH 30 MG
  4. LYRICA [Concomitant]
     Active Substance: PREGABALIN

REACTIONS (6)
  - Emotional poverty [Not Recovered/Not Resolved]
  - Depression [Not Recovered/Not Resolved]
  - Impaired quality of life [Not Recovered/Not Resolved]
  - Family stress [Not Recovered/Not Resolved]
  - Alcohol abuse [Unknown]
  - Homeless [Not Recovered/Not Resolved]
